FAERS Safety Report 14985655 (Version 1)
Quarter: 2018Q2

REPORT INFORMATION
  Report Type: Spontaneous
  Country: CA (occurrence: CA)
  Receive Date: 20180607
  Receipt Date: 20180607
  Transmission Date: 20180711
  Serious: Yes (Hospitalization)
  Sender: FDA-Public Use
  Company Number: CA-TEVA-2018-CA-901359

PATIENT
  Age: 61 Year
  Sex: Male

DRUGS (4)
  1. ATAZANAVIR. [Suspect]
     Active Substance: ATAZANAVIR SULFATE
     Indication: HIV INFECTION
     Route: 065
  2. LAMIVUDINE. [Concomitant]
     Active Substance: LAMIVUDINE
  3. ABACAVIR. [Concomitant]
     Active Substance: ABACAVIR
  4. RITONAVIR. [Concomitant]
     Active Substance: RITONAVIR

REACTIONS (2)
  - Blood creatinine increased [Recovered/Resolved]
  - Nephrolithiasis [Recovered/Resolved]
